FAERS Safety Report 13881681 (Version 1)
Quarter: 2017Q3

REPORT INFORMATION
  Report Type: Other
  Country: CA (occurrence: CA)
  Receive Date: 20170818
  Receipt Date: 20170818
  Transmission Date: 20171127
  Serious: Yes (Hospitalization)
  Sender: FDA-Public Use
  Company Number: CA-APOTEX-2017AP016557

PATIENT
  Age: 80 Year
  Sex: Male

DRUGS (1)
  1. APO-ALFUZOSIN [Suspect]
     Active Substance: ALFUZOSIN HYDROCHLORIDE
     Indication: BENIGN PROSTATIC HYPERPLASIA
     Dosage: 10 MG, UNK
     Route: 048

REACTIONS (2)
  - Product use issue [Unknown]
  - Diarrhoea [Unknown]
